FAERS Safety Report 25859193 (Version 2)
Quarter: 2025Q4

REPORT INFORMATION
  Report Type: Spontaneous
  Country: US (occurrence: US)
  Receive Date: 20250929
  Receipt Date: 20251111
  Transmission Date: 20260117
  Serious: Yes (Hospitalization)
  Sender: TEVA
  Company Number: US-TEVA-VS-3375281

PATIENT
  Age: 56 Year
  Sex: Male

DRUGS (2)
  1. OLANZAPINE [Suspect]
     Active Substance: OLANZAPINE
     Indication: Paranoia
     Route: 065
  2. OLANZAPINE [Suspect]
     Active Substance: OLANZAPINE
     Indication: Paranoia
     Route: 065

REACTIONS (2)
  - Diabetes mellitus [Recovering/Resolving]
  - Hyperglycaemia [Recovering/Resolving]
